FAERS Safety Report 24529413 (Version 1)
Quarter: 2024Q4

REPORT INFORMATION
  Report Type: Other
  Country: ID (occurrence: ID)
  Receive Date: 20241021
  Receipt Date: 20241021
  Transmission Date: 20250115
  Serious: Yes (Hospitalization, Other)
  Sender: OWLPHARMA CONSULTING
  Company Number: ID-Owlpharma Consulting, Lda.-2163448

PATIENT
  Age: 27 Year
  Sex: Female

DRUGS (13)
  1. DEXMEDETOMIDINE HYDROCHLORIDE [Suspect]
     Active Substance: DEXMEDETOMIDINE HYDROCHLORIDE
     Indication: Pain
  2. MEROPENEM [Concomitant]
     Active Substance: MEROPENEM
  3. RISPERIDONE [Suspect]
     Active Substance: RISPERIDONE
  4. DULOXETINE [Suspect]
     Active Substance: DULOXETINE
  5. CELECOXIB [Suspect]
     Active Substance: CELECOXIB
  6. TRAMADOL [Suspect]
     Active Substance: TRAMADOL
  7. PREGABALIN [Suspect]
     Active Substance: PREGABALIN
  8. KETAMINE [Suspect]
     Active Substance: KETAMINE
  9. FENTANYL [Suspect]
     Active Substance: FENTANYL
  10. PROPOFOL [Suspect]
     Active Substance: PROPOFOL
  11. MORPHINE [Suspect]
     Active Substance: MORPHINE
  12. MORPHINE [Suspect]
     Active Substance: MORPHINE
  13. METHYLPREDNISOLONE [Concomitant]
     Active Substance: METHYLPREDNISOLONE

REACTIONS (5)
  - Respiratory depression [Unknown]
  - Off label use [Unknown]
  - Insomnia [Unknown]
  - Mood altered [Unknown]
  - Altered state of consciousness [Unknown]
